FAERS Safety Report 8457154-X (Version None)
Quarter: 2012Q2

REPORT INFORMATION
  Report Type: 
  Country: None (occurrence: None)
  Receive Date: 20120614
  Receipt Date: 20120530
  Transmission Date: 20120825
  Serious: Yes (Death)
  Sender: FDA-Public Use
  Company Number: 217447

PATIENT
  Age: 74 Year
  Sex: Male
  Weight: 78 kg

DRUGS (5)
  1. GUTALAX (SODIUM PICOSULFATE) [Concomitant]
  2. DEXAMETHASONE [Concomitant]
  3. DACARBAZINE [Concomitant]
  4. INNOHEP [Suspect]
     Indication: DEEP VEIN THROMBOSIS
     Dosage: 15000 IU (15000 IU,1 IN 1 D),SUBCUTANEOUS
     Route: 058
     Dates: start: 20120424
  5. ATENOLOL [Concomitant]

REACTIONS (2)
  - CONVULSION [None]
  - METASTASES TO CENTRAL NERVOUS SYSTEM [None]
